FAERS Safety Report 7669479-6 (Version None)
Quarter: 2011Q3

REPORT INFORMATION
  Report Type: 
  Country: None (occurrence: None)
  Receive Date: 20110808
  Receipt Date: 20110729
  Transmission Date: 20111222
  Serious: Yes (Other)
  Sender: FDA-Public Use
  Company Number: US-PFIZER INC-2011130803

PATIENT
  Sex: Female
  Weight: 58.957 kg

DRUGS (3)
  1. ASACOL [Concomitant]
     Dosage: UNK
     Dates: start: 20101201
  2. AZULFIDINE [Suspect]
     Indication: COLITIS ULCERATIVE
     Dosage: 1000 MG, 2X/DAY
     Route: 048
     Dates: start: 20110216
  3. PEPCID [Concomitant]
     Indication: DYSPEPSIA
     Dosage: 10 MG, 2X/DAY

REACTIONS (7)
  - RECTAL HAEMORRHAGE [None]
  - ARTHRALGIA [None]
  - PROCEDURAL PAIN [None]
  - ANAL FISSURE [None]
  - HAEMORRHOIDS [None]
  - PROCTALGIA [None]
  - CONVULSION [None]
